APPROVED DRUG PRODUCT: VENLAFAXINE HYDROCHLORIDE
Active Ingredient: VENLAFAXINE HYDROCHLORIDE
Strength: EQ 225MG BASE
Dosage Form/Route: TABLET, EXTENDED RELEASE;ORAL
Application: A214609 | Product #002 | TE Code: AB
Applicant: SOMERSET THERAPEUTICS LLC
Approved: Jun 30, 2021 | RLD: No | RS: No | Type: RX